FAERS Safety Report 6066995-8 (Version None)
Quarter: 2009Q1

REPORT INFORMATION
  Report Type: 
  Country: None (occurrence: None)
  Receive Date: 20090205
  Receipt Date: 20090129
  Transmission Date: 20090719
  Serious: Yes (Death)
  Sender: FDA-Public Use
  Company Number: GB-ABBOTT-08P-167-0484558-00

PATIENT
  Age: 32 Year
  Sex: Male

DRUGS (1)
  1. EPILIM [Suspect]
     Indication: EPILEPSY
     Route: 065

REACTIONS (6)
  - CONTUSION [None]
  - DRUG LEVEL BELOW THERAPEUTIC [None]
  - EPILEPSY [None]
  - FALL [None]
  - SKULL FRACTURE [None]
  - TREATMENT NONCOMPLIANCE [None]
